FAERS Safety Report 8482348-7 (Version None)
Quarter: 2012Q3

REPORT INFORMATION
  Report Type: 
  Country: None (occurrence: None)
  Receive Date: 20120702
  Receipt Date: 20120622
  Transmission Date: 20120928
  Serious: Yes (Other)
  Sender: FDA-Public Use
  Company Number: US-ASTRAZENECA-2012SE42232

PATIENT
  Age: 63 Year
  Sex: Female
  Weight: 72.6 kg

DRUGS (13)
  1. DEXLANSOPRAZOLE [Suspect]
     Indication: GASTROOESOPHAGEAL REFLUX DISEASE
     Route: 048
  2. VENLAFAXINE HYDROCHOLRIDE [Suspect]
     Indication: PANIC ATTACK
     Route: 048
     Dates: start: 20050101
  3. NEXIUM [Suspect]
     Indication: GASTROOESOPHAGEAL REFLUX DISEASE
     Route: 048
     Dates: start: 20100101
  4. DEXLANSOPRAZOLE [Suspect]
     Indication: OESOPHAGEAL DISORDER
     Route: 048
  5. VENLAFAXINE HYDROCHOLRIDE [Suspect]
     Indication: STRESS
     Route: 048
     Dates: start: 20050101
  6. DEXLANSOPRAZOLE [Suspect]
     Route: 048
  7. VENLAFAXINE HYDROCHOLRIDE [Suspect]
     Indication: NERVOUSNESS
     Route: 048
     Dates: start: 20050101
  8. VENLAFAXINE HYDROCHOLRIDE [Suspect]
     Indication: PANIC DISORDER
     Route: 048
     Dates: start: 20050101
  9. VENLAFAXINE HYDROCHOLRIDE [Suspect]
     Indication: ANXIETY
     Route: 048
     Dates: start: 20050101
  10. VENLAFAXINE HYDROCHOLRIDE [Suspect]
     Indication: BIPOLAR DISORDER
     Route: 048
     Dates: start: 20050101
  11. NEXIUM [Suspect]
     Indication: DYSPEPSIA
     Route: 048
     Dates: start: 20100101
  12. DEXLANSOPRAZOLE [Suspect]
     Route: 048
  13. VENLAFAXINE HYDROCHOLRIDE [Suspect]
     Indication: DEPRESSION
     Route: 048
     Dates: start: 20050101

REACTIONS (7)
  - OESOPHAGEAL HAEMORRHAGE [None]
  - BENIGN LUNG NEOPLASM [None]
  - OROPHARYNGEAL PAIN [None]
  - EAR PAIN [None]
  - NASOPHARYNGITIS [None]
  - INCREASED BRONCHIAL SECRETION [None]
  - ULCER [None]
